FAERS Safety Report 7358070-7 (Version None)
Quarter: 2011Q1

REPORT INFORMATION
  Report Type: 
  Country: None (occurrence: None)
  Receive Date: 20110317
  Receipt Date: 20110303
  Transmission Date: 20110831
  Serious: Yes (Hospitalization)
  Sender: FDA-Public Use
  Company Number: PHHY2011NL17763

PATIENT
  Sex: Male

DRUGS (3)
  1. ZOMETA [Suspect]
     Indication: PROSTATE CANCER METASTATIC
     Dosage: 4 MG/5 ML 1X PER 28 DAYS
     Route: 042
     Dates: start: 20110201
  2. ZOMETA [Suspect]
     Dosage: 4 MG/5 ML 1X PER 28 DAYS
     Dates: start: 20110303
  3. FIRMAGON [Concomitant]

REACTIONS (6)
  - FATIGUE [None]
  - LUNG NEOPLASM MALIGNANT [None]
  - MALAISE [None]
  - MUSCULOSKELETAL CHEST PAIN [None]
  - DYSPNOEA [None]
  - CHEST DISCOMFORT [None]
